FAERS Safety Report 13868686 (Version 5)
Quarter: 2018Q2

REPORT INFORMATION
  Report Type: Spontaneous
  Country: US (occurrence: US)
  Receive Date: 20170815
  Receipt Date: 20180531
  Transmission Date: 20180711
  Serious: Yes (Other)
  Sender: FDA-Public Use
  Company Number: US-PFIZER INC-2017348652

PATIENT
  Age: 65 Year
  Sex: Male
  Weight: 72.56 kg

DRUGS (10)
  1. FLOMAX [Suspect]
     Active Substance: TAMSULOSIN HYDROCHLORIDE
     Indication: PROSTATOMEGALY
     Dosage: 100 MG, UNK
     Route: 048
     Dates: start: 2015
  2. OYSTER SHELL CALCIUM [Concomitant]
     Active Substance: CALCIUM
     Indication: MINERAL SUPPLEMENTATION
     Dosage: 500 MG, 1X/DAY WITH DINNER
     Route: 048
     Dates: start: 2017
  3. NORCO [Concomitant]
     Active Substance: ACETAMINOPHEN\HYDROCODONE BITARTRATE
     Indication: PAIN
     Dosage: 10/325MG, TAKES HALF OF A PILL BY MOUTH EVERY 4 HOURS AS NEEDED
  4. BABY ASPIRIN [Concomitant]
     Active Substance: ASPIRIN
     Indication: CARDIAC DISORDER
     Dosage: 81 MG, 1X/DAY IN THE MORNING
     Route: 048
  5. WELLBUTRIN [Concomitant]
     Active Substance: BUPROPION HYDROCHLORIDE
     Indication: EX-TOBACCO USER
     Dosage: 100 MG, 2X/DAY
     Route: 048
  6. KLONOPIN [Concomitant]
     Active Substance: CLONAZEPAM
     Indication: PSYCHOMOTOR HYPERACTIVITY
     Dosage: 0.5 MG, AS NEEDED
     Route: 048
     Dates: start: 2017
  7. GABAPENTIN. [Concomitant]
     Active Substance: GABAPENTIN
     Indication: NERVE INJURY
     Dosage: 300 MG, 1X/DAY AT NIGHT
     Route: 048
  8. IBUPROFEN. [Concomitant]
     Active Substance: IBUPROFEN
     Indication: PAIN
     Dosage: 800 MG, WITH FOOD AS NEEDED
     Route: 048
     Dates: start: 2016
  9. FISH OIL [Concomitant]
     Active Substance: FISH OIL
     Indication: ATTENTION DEFICIT/HYPERACTIVITY DISORDER
     Dosage: 1000 MG, 1X/DAY
     Route: 048
  10. VIAGRA [Suspect]
     Active Substance: SILDENAFIL CITRATE
     Indication: ERECTILE DYSFUNCTION
     Dosage: 50 MG, AS NEEDED

REACTIONS (4)
  - Erection increased [Unknown]
  - Suspected counterfeit product [Unknown]
  - Drug effect prolonged [Not Recovered/Not Resolved]
  - Ejaculation disorder [Unknown]
